FAERS Safety Report 23594968 (Version 1)
Quarter: 2024Q1

REPORT INFORMATION
  Report Type: Spontaneous
  Country: FR (occurrence: FR)
  Receive Date: 20240305
  Receipt Date: 20240305
  Transmission Date: 20240409
  Serious: Yes (Other)
  Sender: FDA-Public Use
  Company Number: FR-EMA-20150319-AUTODUP-418407

PATIENT
  Age: 54 Year
  Sex: Male

DRUGS (4)
  1. PANTOPRAZOLE [Suspect]
     Active Substance: PANTOPRAZOLE
     Indication: Product used for unknown indication
     Dosage: 40 MILLIGRAM, ONCE A DAY
     Route: 048
     Dates: start: 20140727
  2. XOLAIR [Suspect]
     Active Substance: OMALIZUMAB
     Indication: Asthma
     Dosage: 450 MILLIGRAM, QOW
     Route: 058
     Dates: start: 20081114
  3. XOLAIR [Suspect]
     Active Substance: OMALIZUMAB
     Dosage: 450 MG, EVERY OTHER WEEK
     Route: 058
     Dates: start: 2010
  4. SYMBICORT [Concomitant]
     Active Substance: BUDESONIDE\FORMOTEROL FUMARATE DIHYDRATE
     Indication: Asthma
     Dosage: 200 UKN, BID

REACTIONS (9)
  - Anaemia [Not Recovered/Not Resolved]
  - Asthenia [Unknown]
  - Asthma [Unknown]
  - Blood iron decreased [Unknown]
  - Dyspnoea [Unknown]
  - Fatigue [Unknown]
  - Hiatus hernia [Unknown]
  - Red blood cell sedimentation rate increased [Not Recovered/Not Resolved]
  - Serum ferritin decreased [Unknown]

NARRATIVE: CASE EVENT DATE: 20121228
